FAERS Safety Report 4849351-7 (Version None)
Quarter: 2005Q4

REPORT INFORMATION
  Report Type: 
  Country: None (occurrence: None)
  Receive Date: 20051207
  Receipt Date: 20051129
  Transmission Date: 20060501
  Serious: Yes (Disabling)
  Sender: FDA-Public Use
  Company Number: 2005162456

PATIENT
  Age: 21 Year
  Sex: Female
  Weight: 49.8957 kg

DRUGS (3)
  1. ZOLOFT [Suspect]
     Indication: DEPRESSION
     Dosage: 25 MG (25 MG, 1 IN 1 D)
     Route: 048
  2. ZOLOFT [Suspect]
     Indication: PANIC ATTACK
     Dosage: 25 MG (25 MG, 1 IN 1 D)
     Route: 048
  3. XANAX [Suspect]
     Indication: ILL-DEFINED DISORDER
     Route: 048

REACTIONS (9)
  - CRYING [None]
  - DISCOMFORT [None]
  - DRUG INEFFECTIVE [None]
  - FATIGUE [None]
  - FEELING ABNORMAL [None]
  - NAUSEA [None]
  - PARAESTHESIA [None]
  - TREMOR [None]
  - VOMITING [None]
